FAERS Safety Report 6008548-3 (Version None)
Quarter: 2008Q4

REPORT INFORMATION
  Report Type: 
  Country: None (occurrence: None)
  Receive Date: 20081217
  Receipt Date: 20081216
  Transmission Date: 20090506
  Serious: Yes (Hospitalization)
  Sender: FDA-Public Use
  Company Number: US-B.I. PHARMACEUTICALS,INC./RIDGEFIELD-2008-BP-18187BP

PATIENT
  Sex: Female

DRUGS (3)
  1. SPIRIVA [Suspect]
     Indication: CHRONIC OBSTRUCTIVE PULMONARY DISEASE
     Dosage: 18MCG
     Route: 055
  2. PREMARIN [Concomitant]
  3. ALBUTEROL [Concomitant]
     Route: 055

REACTIONS (3)
  - CYST DRAINAGE [None]
  - PANCREATITIS [None]
  - PANCREATITIS ACUTE [None]
